FAERS Safety Report 8549467-8 (Version None)
Quarter: 2012Q3

REPORT INFORMATION
  Report Type: 
  Country: None (occurrence: None)
  Receive Date: 20120730
  Receipt Date: 20120726
  Transmission Date: 20120928
  Serious: Yes (Death)
  Sender: FDA-Public Use
  Company Number: US-ROCHE-1091905

PATIENT
  Sex: Male
  Weight: 70.37 kg

DRUGS (1)
  1. XELODA [Suspect]
     Indication: COLON CANCER
     Route: 048
     Dates: start: 20120705

REACTIONS (3)
  - COLON CANCER METASTATIC [None]
  - MALIGNANT ASCITES [None]
  - METASTASES TO PERITONEUM [None]
